FAERS Safety Report 24171228 (Version 1)
Quarter: 2024Q3

REPORT INFORMATION
  Report Type: Report from Study
  Country: US (occurrence: US)
  Receive Date: 20240805
  Receipt Date: 20240805
  Transmission Date: 20241017
  Serious: No
  Sender: RANBAXY
  Company Number: US-SUN PHARMACEUTICAL INDUSTRIES LTD-2023R1-416915

PATIENT
  Sex: Female

DRUGS (1)
  1. SONIDEGIB [Suspect]
     Active Substance: SONIDEGIB
     Indication: Product used for unknown indication
     Dosage: UNK (TAKE 1 CAPSULE BY MOUTH DAILY ON AN EMPTY STOMACH)
     Route: 048
     Dates: start: 20230808

REACTIONS (1)
  - Therapy cessation [Unknown]
